FAERS Safety Report 20837315 (Version 4)
Quarter: 2022Q2

REPORT INFORMATION
  Report Type: Spontaneous
  Country: ES (occurrence: ES)
  Receive Date: 20220517
  Receipt Date: 20220630
  Transmission Date: 20220721
  Serious: Yes (Life-Threatening, Hospitalization, Other)
  Sender: FDA-Public Use
  Company Number: ES-CELLTRION INC.-2022ES006639

PATIENT

DRUGS (24)
  1. RITUXIMAB [Interacting]
     Active Substance: RITUXIMAB
     Indication: Follicular lymphoma stage IV
     Dosage: 375 MG/M2 DAY 1, ONCE EVERY 21 DAYS,  (ONCE EVERY 21 DAYS, COMPLETING SIX CYCLES)
     Route: 065
     Dates: start: 202004, end: 202008
  2. RITUXIMAB [Interacting]
     Active Substance: RITUXIMAB
     Indication: Follicular lymphoma
     Dosage: 375 MG/M2, BIMONTHLY; Q2MO (MAINTENANCE TREATMENT); 375 MG/M2, CYCLIC (BIMONTHLY)
     Route: 065
     Dates: start: 202010
  3. RITUXIMAB [Interacting]
     Active Substance: RITUXIMAB
     Indication: Non-Hodgkin^s lymphoma
     Dosage: 4TH DOSE/UNK, CYCLIC (FOURTH AND FIFTH DOSE)
     Dates: start: 202105
  4. RITUXIMAB [Interacting]
     Active Substance: RITUXIMAB
     Indication: B-cell lymphoma
     Dosage: 5TH DOSE/UNK, CYCLIC (FOURTH AND FIFTH DOSE)
     Route: 065
     Dates: start: 20210527
  5. RITUXIMAB [Interacting]
     Active Substance: RITUXIMAB
     Dosage: 6TH DOSE, UNK, CYCLIC (SIXTH DOSE)
     Route: 065
     Dates: start: 20211001
  6. RITUXIMAB [Interacting]
     Active Substance: RITUXIMAB
     Dosage: 375 MG/M2, 21/DAY
     Route: 042
     Dates: start: 202004, end: 202008
  7. RITUXIMAB [Interacting]
     Active Substance: RITUXIMAB
     Dosage: 375 MG/M2, 0.5/MONTH
     Route: 042
     Dates: start: 202010
  8. RITUXIMAB [Interacting]
     Active Substance: RITUXIMAB
     Dosage: 375 MG/M2
     Route: 042
     Dates: start: 20211001
  9. RITUXIMAB [Interacting]
     Active Substance: RITUXIMAB
     Dosage: 375 MG/M2, 5TH DOSE
     Route: 042
     Dates: start: 20210527
  10. DOXORUBICIN [Suspect]
     Active Substance: DOXORUBICIN
     Indication: Follicular lymphoma
     Dosage: 50 MG/M2 DAY 1, EVERY 21 DAYS, SIX CYCLES
     Dates: start: 202004, end: 202008
  11. VINCRISTINE [Suspect]
     Active Substance: VINCRISTINE
     Indication: Follicular lymphoma
     Dosage: 1.4 MG/M2 DAY 1, EVERY 21 DAYS, SIX CYCLES
     Dates: start: 202004, end: 202008
  12. VINCRISTINE [Suspect]
     Active Substance: VINCRISTINE
     Indication: Non-Hodgkin^s lymphoma
     Dosage: 1.4 MG/M2 DAY 1, EVERY 21 DAYS, SIX CYCLES (PHARMACEUTICAL DOSE FORM: SOLUTION FOR INJECTION)
     Dates: start: 202004, end: 202008
  13. CYCLOPHOSPHAMIDE [Suspect]
     Active Substance: CYCLOPHOSPHAMIDE
     Indication: Follicular lymphoma
     Dosage: 750 MG/M2 DAY 1, EVERY 21 DAYS, SIX CYCLES
     Dates: start: 202004, end: 202008
  14. CYCLOPHOSPHAMIDE [Suspect]
     Active Substance: CYCLOPHOSPHAMIDE
     Indication: Non-Hodgkin^s lymphoma
  15. PREDNISOLONE [Suspect]
     Active Substance: PREDNISOLONE
     Indication: Follicular lymphoma
     Dosage: 100 MG/24 H DAYS 1-5, EVERY 21 DAYS, 100 MG, 1X/DAY
     Dates: start: 202004, end: 202008
  16. PREDNISOLONE [Suspect]
     Active Substance: PREDNISOLONE
     Indication: Non-Hodgkin^s lymphoma
  17. DOXORUBICIN HYDROCHLORIDE [Suspect]
     Active Substance: DOXORUBICIN HYDROCHLORIDE
     Indication: Non-Hodgkin^s lymphoma
     Dosage: 50 MG/M2, CYCLIC,EVERY 21 DAYS, SIX CYCLES
     Dates: start: 202004, end: 202008
  18. TOCILIZUMAB [Suspect]
     Active Substance: TOCILIZUMAB
     Indication: COVID-19
     Dosage: TWO DOSES OF TOCILIZUMAB WERE ADMINISTERED
     Route: 065
     Dates: start: 20210729
  19. ELASOMERAN [Interacting]
     Active Substance: ELASOMERAN
     Indication: COVID-19 prophylaxis
     Dosage: UNK
     Route: 065
     Dates: start: 20211123
  20. ELASOMERAN [Interacting]
     Active Substance: ELASOMERAN
     Dosage: UNK
     Route: 065
     Dates: start: 20210601
  21. ELASOMERAN [Interacting]
     Active Substance: ELASOMERAN
     Dosage: UNK
     Route: 065
     Dates: start: 20210505
  22. ELASOMERAN [Concomitant]
     Active Substance: ELASOMERAN
     Indication: Immunisation
     Dosage: 2 DOSES IN MAY AND JUNE 2021
     Dates: start: 20210505
  23. ELASOMERAN [Concomitant]
     Active Substance: ELASOMERAN
     Dosage: 2 DOSES IN MAY AND JUNE 2021
     Dates: start: 20210601
  24. ELASOMERAN [Concomitant]
     Active Substance: ELASOMERAN
     Dosage: THIRD DOSE
     Dates: start: 20211123

REACTIONS (12)
  - COVID-19 pneumonia [Recovered/Resolved]
  - COVID-19 [Recovering/Resolving]
  - COVID-19 [Recovered/Resolved]
  - Pyrexia [Recovered/Resolved]
  - Cough [Recovered/Resolved]
  - Immunodeficiency [Unknown]
  - Drug ineffective [Recovered/Resolved]
  - Vaccination failure [Unknown]
  - Hypogammaglobulinaemia [Unknown]
  - Drug interaction [Unknown]
  - Vaccination failure [Unknown]
  - Off label use [Unknown]

NARRATIVE: CASE EVENT DATE: 20210701
